FAERS Safety Report 7788066-2 (Version None)
Quarter: 2011Q3

REPORT INFORMATION
  Report Type: 
  Country: None (occurrence: None)
  Receive Date: 20110927
  Receipt Date: 20110916
  Transmission Date: 20111222
  Serious: Yes (Hospitalization)
  Sender: FDA-Public Use
  Company Number: 2011SP044266

PATIENT
  Age: 77 Year
  Sex: Female

DRUGS (10)
  1. CHONDROSULF [Concomitant]
  2. FLECAINIDE ACETATE [Concomitant]
  3. ZESTORETIC [Concomitant]
  4. DEXCHLORPHENIRAMINE MALEATE [Suspect]
     Indication: URTICARIA
     Dosage: PO
     Route: 048
     Dates: start: 20110725, end: 20110808
  5. PAROXETINE HCL [Concomitant]
  6. NOCTAMIDE [Concomitant]
  7. DESLORATADINE [Suspect]
     Indication: URTICARIA
     Dosage: 5 MG; QD; PO
     Route: 048
     Dates: start: 20110809
  8. PREVISCAN (FLUINDIONE) [Suspect]
     Indication: ARRHYTHMIA PROPHYLAXIS
     Dosage: PO
     Route: 048
     Dates: start: 20110614, end: 20110818
  9. FENOFIBRATE [Concomitant]
  10. CLONAZEPAM [Concomitant]

REACTIONS (15)
  - BLOOD UREA INCREASED [None]
  - BLOOD URINE PRESENT [None]
  - MUSCULAR WEAKNESS [None]
  - HAEMATOMA [None]
  - INTERNATIONAL NORMALISED RATIO INCREASED [None]
  - CHOLELITHIASIS [None]
  - MYOCARDITIS [None]
  - ANAEMIA [None]
  - MALAISE [None]
  - HYPONATRAEMIA [None]
  - FALL [None]
  - SWELLING [None]
  - BLOOD CREATININE INCREASED [None]
  - LEUKOCYTOSIS [None]
  - INFECTION [None]
